FAERS Safety Report 8817834 (Version 2)
Quarter: 2013Q1

REPORT INFORMATION
  Report Type: Report from Study
  Country: BR (occurrence: BR)
  Receive Date: 20121004
  Receipt Date: 20130221
  Transmission Date: 20140127
  Serious: Yes (Other)
  Sender: FDA-Public Use
  Company Number: BR-ROCHE-706615

PATIENT
  Sex: Female
  Weight: 66 kg

DRUGS (6)
  1. MABTHERA [Suspect]
     Indication: RHEUMATOID ARTHRITIS
     Dosage: 500MG/50ML
     Route: 042
     Dates: start: 200908, end: 200908
  2. MABTHERA [Suspect]
     Route: 065
  3. MABTHERA [Suspect]
     Route: 065
  4. MABTHERA [Suspect]
     Route: 065
  5. ENALAPRIL [Concomitant]
     Indication: HYPERTENSION
     Route: 065
  6. OMEPRAZOLE [Concomitant]
     Indication: PROPHYLAXIS

REACTIONS (4)
  - Haemarthrosis [Unknown]
  - Gait disturbance [Not Recovered/Not Resolved]
  - Impaired healing [Not Recovered/Not Resolved]
  - Wound [Not Recovered/Not Resolved]
